FAERS Safety Report 8915630 (Version 3)
Quarter: 2013Q1

REPORT INFORMATION
  Report Type: Spontaneous
  Country: US (occurrence: US)
  Receive Date: 20121119
  Receipt Date: 20130202
  Transmission Date: 20140127
  Serious: No
  Sender: FDA-Public Use
  Company Number: US-TEVA-371057USA

PATIENT
  Age: 28 Year
  Sex: Female
  Weight: 61.29 kg

DRUGS (1)
  1. PLAN B ONE-STEP [Suspect]
     Indication: POST COITAL CONTRACEPTION
     Dosage: 1.5 MILLIGRAM DAILY;
     Route: 048
     Dates: start: 20121108, end: 20121108

REACTIONS (3)
  - Mood altered [Recovered/Resolved]
  - Metrorrhagia [Recovered/Resolved]
  - Menstruation delayed [Recovered/Resolved]
